FAERS Safety Report 15827085 (Version 2)
Quarter: 2019Q1

REPORT INFORMATION
  Report Type: Report from Study
  Country: DE (occurrence: DE)
  Receive Date: 20190115
  Receipt Date: 20190204
  Transmission Date: 20190417
  Serious: Yes (Death, Hospitalization)
  Sender: FDA-Public Use
  Company Number: DE-GILEAD-2018-0373522

PATIENT
  Sex: Female
  Weight: 71 kg

DRUGS (12)
  1. IDELALISIB [Suspect]
     Active Substance: IDELALISIB
     Indication: CHRONIC LYMPHOCYTIC LEUKAEMIA
     Dosage: 300 MG, QD
     Route: 048
     Dates: start: 20181012, end: 20181027
  2. VENLAFAXIN [Concomitant]
     Active Substance: VENLAFAXINE HYDROCHLORIDE
  3. REKAWAN [Concomitant]
     Active Substance: POTASSIUM CHLORIDE
  4. IBUPROFEN. [Concomitant]
     Active Substance: IBUPROFEN
     Indication: HERPES ZOSTER
  5. PANTOZOL [Concomitant]
     Active Substance: PANTOPRAZOLE SODIUM
  6. MOVICOL [Concomitant]
     Active Substance: POLYETHYLENE GLYCOL 3350\POTASSIUM CHLORIDE\SODIUM BICARBONATE\SODIUM CHLORIDE
     Indication: SUBILEUS
  7. TILIDIN [Concomitant]
     Active Substance: NALOXONE HYDROCHLORIDE\TILIDINE HYDROCHLORIDE
     Indication: HERPES ZOSTER
  8. L-LYSIN [Concomitant]
  9. LYRICA [Concomitant]
     Active Substance: PREGABALIN
     Indication: DEPRESSION
  10. VALACICLOVIR [Concomitant]
     Active Substance: VALACYCLOVIR HYDROCHLORIDE
     Indication: HERPES ZOSTER
  11. AMLODIPINE [AMLODIPINE MALEATE] [Concomitant]
     Indication: PULMONARY ARTERIAL HYPERTENSION
  12. VENCLYXTO [Concomitant]
     Active Substance: VENETOCLAX
     Indication: CHRONIC LYMPHOCYTIC LEUKAEMIA

REACTIONS (1)
  - Febrile neutropenia [Fatal]

NARRATIVE: CASE EVENT DATE: 20181027
